FAERS Safety Report 4815049-4 (Version None)
Quarter: 2005Q4

REPORT INFORMATION
  Report Type: 
  Country: None (occurrence: None)
  Receive Date: 20051026
  Receipt Date: 20051006
  Transmission Date: 20060501
  Serious: Yes (Disabling)
  Sender: FDA-Public Use
  Company Number: GBS051018633

PATIENT
  Age: 48 Year
  Sex: Male

DRUGS (8)
  1. TADALAFIL [Suspect]
     Indication: ERECTILE DYSFUNCTION
     Dosage: 20 MG/2 MONTH
     Dates: start: 20050701, end: 20050801
  2. DIAMOX [Concomitant]
  3. MELOXICAM [Concomitant]
  4. SYNACTHEN DEPOT [Concomitant]
  5. ACETAMINOPHEN [Concomitant]
  6. LATANOPROST [Concomitant]
  7. RANITIDINE [Concomitant]
  8. AZOPT [Concomitant]

REACTIONS (4)
  - ARTHRITIS [None]
  - CONDITION AGGRAVATED [None]
  - MOBILITY DECREASED [None]
  - PAIN [None]
